FAERS Safety Report 6054512-8 (Version None)
Quarter: 2009Q1

REPORT INFORMATION
  Report Type: 
  Country: None (occurrence: None)
  Receive Date: 20090127
  Receipt Date: 20090115
  Transmission Date: 20090719
  Serious: Yes (Other)
  Sender: FDA-Public Use
  Company Number: PHEH2009US00860

PATIENT
  Sex: Female

DRUGS (15)
  1. COMTAN [Interacting]
     Indication: PARKINSON'S DISEASE
  2. SINEMET [Interacting]
     Indication: PARKINSON'S DISEASE
  3. RISPERIDONE [Interacting]
     Dosage: UNK
     Dates: start: 20081215, end: 20090104
  4. REQUIP [Suspect]
  5. AMITRIPTYLINE HCL [Concomitant]
     Dosage: UNK
  6. ATENOLOL [Concomitant]
     Indication: HYPERTENSION
     Dosage: UNK
  7. LEXAPRO [Concomitant]
     Dosage: UNK
  8. LISINOPRIL [Concomitant]
     Dosage: UNK
  9. FOLIC ACID [Concomitant]
  10. XANAX [Concomitant]
     Dosage: UNK
  11. MORPHINE [Concomitant]
     Indication: PAIN
     Dosage: UNK
  12. PREVACID [Concomitant]
     Dosage: UNK
  13. MS CONTIN [Concomitant]
     Indication: PAIN
  14. TORSEMIDE [Concomitant]
     Dosage: UNK
  15. MIRALAX [Concomitant]
     Dosage: UNK

REACTIONS (10)
  - ABNORMAL BEHAVIOUR [None]
  - CONFUSIONAL STATE [None]
  - DRUG DISPENSING ERROR [None]
  - DRUG INTERACTION [None]
  - FATIGUE [None]
  - LETHARGY [None]
  - MEMORY IMPAIRMENT [None]
  - PHOTOPHOBIA [None]
  - SEDATION [None]
  - UNRESPONSIVE TO STIMULI [None]
